FAERS Safety Report 25765540 (Version 1)
Quarter: 2025Q3

REPORT INFORMATION
  Report Type: Spontaneous
  Country: JP (occurrence: JP)
  Receive Date: 20250905
  Receipt Date: 20250905
  Transmission Date: 20251020
  Serious: Yes (Other)
  Sender: MYLAN
  Company Number: JP-VIATRISJAPAN-2025M1073684AA

PATIENT
  Age: 76 Year
  Sex: Male

DRUGS (16)
  1. XALATAN [Suspect]
     Active Substance: LATANOPROST
     Indication: Ocular hypertension
  2. XALATAN [Suspect]
     Active Substance: LATANOPROST
     Route: 047
  3. XALATAN [Suspect]
     Active Substance: LATANOPROST
     Route: 047
  4. XALATAN [Suspect]
     Active Substance: LATANOPROST
  5. CARTEOLOL [Suspect]
     Active Substance: CARTEOLOL
     Indication: Ocular hypertension
  6. CARTEOLOL [Suspect]
     Active Substance: CARTEOLOL
     Route: 047
  7. CARTEOLOL [Suspect]
     Active Substance: CARTEOLOL
     Route: 047
  8. CARTEOLOL [Suspect]
     Active Substance: CARTEOLOL
  9. BRINZOLAMIDE [Suspect]
     Active Substance: BRINZOLAMIDE
     Indication: Ocular hypertension
  10. BRINZOLAMIDE [Suspect]
     Active Substance: BRINZOLAMIDE
     Route: 047
  11. BRINZOLAMIDE [Suspect]
     Active Substance: BRINZOLAMIDE
     Route: 047
  12. BRINZOLAMIDE [Suspect]
     Active Substance: BRINZOLAMIDE
  13. RIPASUDIL [Suspect]
     Active Substance: RIPASUDIL
     Indication: Ocular hypertension
  14. RIPASUDIL [Suspect]
     Active Substance: RIPASUDIL
     Route: 047
  15. RIPASUDIL [Suspect]
     Active Substance: RIPASUDIL
     Route: 047
  16. RIPASUDIL [Suspect]
     Active Substance: RIPASUDIL

REACTIONS (1)
  - Anterior chamber inflammation [Recovered/Resolved]
